FAERS Safety Report 8183972-1 (Version None)
Quarter: 2012Q1

REPORT INFORMATION
  Report Type: 
  Country: None (occurrence: None)
  Receive Date: 20120203
  Receipt Date: 20110919
  Transmission Date: 20120608
  Serious: Yes (Hospitalization)
  Sender: FDA-Public Use
  Company Number: 123582

PATIENT
  Age: 5 Year
  Sex: Male

DRUGS (1)
  1. DAUNORUBICIN HCL [Suspect]
     Indication: ACUTE LYMPHOCYTIC LEUKAEMIA
     Dosage: 22MG/IV
     Route: 042
     Dates: start: 20110712, end: 20110719

REACTIONS (4)
  - CELLULITIS [None]
  - NEUTROPENIA [None]
  - HYPOALBUMINAEMIA [None]
  - PYREXIA [None]
